FAERS Safety Report 4938969-9 (Version None)
Quarter: 2006Q1

REPORT INFORMATION
  Report Type: 
  Country: None (occurrence: None)
  Receive Date: 20060309
  Receipt Date: 20011112
  Transmission Date: 20060701
  Serious: Yes (Death, Life-Threatening)
  Sender: FDA-Public Use
  Company Number: JP-MERCK-01112446

PATIENT
  Age: 72 Year
  Sex: Female

DRUGS (14)
  1. PEPCID [Suspect]
     Indication: GASTRITIS
     Route: 048
     Dates: end: 20000501
  2. PEPCID [Suspect]
     Indication: GASTRIC ULCER
     Route: 048
     Dates: end: 20000501
  3. NORVASC [Suspect]
     Indication: HYPERTENSION
     Route: 048
     Dates: end: 20000513
  4. METHYLPREDNISOLONE [Concomitant]
     Route: 065
  5. SULFAMETHOXAZOLE [Concomitant]
     Route: 065
  6. WARFARIN POTASSIUM [Concomitant]
     Route: 048
     Dates: end: 20000520
  7. CELTECT [Concomitant]
     Route: 048
     Dates: end: 20000523
  8. SEDIEL [Concomitant]
     Route: 048
     Dates: end: 20000520
  9. POLARAMINE [Concomitant]
     Route: 048
     Dates: end: 20000524
  10. PANALDINE [Concomitant]
     Route: 048
     Dates: end: 20000520
  11. ALOSENN [Concomitant]
     Route: 048
  12. MARZULENE-S [Concomitant]
     Route: 048
     Dates: end: 20000515
  13. LANIRAPID [Concomitant]
     Route: 048
     Dates: end: 20000509
  14. LASIX [Concomitant]
     Route: 048

REACTIONS (14)
  - B-CELL LYMPHOMA [None]
  - DEHYDRATION [None]
  - DERMATITIS EXFOLIATIVE [None]
  - DERMATOMYOSITIS [None]
  - DRUG INEFFECTIVE [None]
  - LUNG INFECTION [None]
  - LUNG NEOPLASM MALIGNANT [None]
  - LYMPHOCYTE STIMULATION TEST POSITIVE [None]
  - NEPHRITIS INTERSTITIAL [None]
  - NOCARDIOSIS [None]
  - PITYRIASIS LICHENOIDES ET VARIOLIFORMIS ACUTA [None]
  - PNEUMONIA [None]
  - RASH [None]
  - SKIN ULCER [None]
